FAERS Safety Report 24602399 (Version 2)
Quarter: 2025Q1

REPORT INFORMATION
  Report Type: Report from Study
  Country: US (occurrence: US)
  Receive Date: 20241111
  Receipt Date: 20250113
  Transmission Date: 20250409
  Serious: Yes (Other)
  Sender: NOVARTIS
  Company Number: US-002147023-NVSC2024US216307

PATIENT
  Sex: Male

DRUGS (1)
  1. KESIMPTA [Suspect]
     Active Substance: OFATUMUMAB
     Indication: Product used for unknown indication
     Dosage: 20 MG, QMO
     Route: 058
     Dates: start: 20240415

REACTIONS (6)
  - Multiple sclerosis [Unknown]
  - Muscular weakness [Unknown]
  - Fatigue [Unknown]
  - Limb discomfort [Unknown]
  - Nasopharyngitis [Unknown]
  - Pyrexia [Unknown]
